FAERS Safety Report 8394473-X (Version None)
Quarter: 2012Q2

REPORT INFORMATION
  Report Type: 
  Country: None (occurrence: None)
  Receive Date: 20120530
  Receipt Date: 20080522
  Transmission Date: 20120825
  Serious: No
  Sender: FDA-Public Use
  Company Number: US-PFIZER INC-2008045411

PATIENT
  Sex: Female
  Weight: 61.818 kg

DRUGS (12)
  1. SOMA [Suspect]
  2. FOSAMAX [Concomitant]
  3. INDOMETHACIN [Concomitant]
  4. SERTRALINE HYDROCHLORIDE [Suspect]
     Indication: DEPRESSION
  5. CHANTIX [Suspect]
     Indication: SMOKING CESSATION THERAPY
     Dates: start: 20080512, end: 20080520
  6. ALBUTEROL [Concomitant]
  7. DICLOFENAC [Concomitant]
  8. VICODIN [Concomitant]
  9. TRAZODONE HCL [Concomitant]
  10. SULAR [Concomitant]
  11. FLUNISOLIDE [Concomitant]
     Route: 055
  12. PREVACID [Concomitant]

REACTIONS (10)
  - INSOMNIA [None]
  - NERVOUSNESS [None]
  - ANXIETY [None]
  - DRUG TOLERANCE [None]
  - TOBACCO USER [None]
  - MEMORY IMPAIRMENT [None]
  - DRUG ABUSE [None]
  - DEPRESSION [None]
  - INTENTIONAL DRUG MISUSE [None]
  - FEAR [None]
